FAERS Safety Report 8314451-6 (Version None)
Quarter: 2012Q2

REPORT INFORMATION
  Report Type: 
  Country: None (occurrence: None)
  Receive Date: 20120426
  Receipt Date: 20120419
  Transmission Date: 20120825
  Serious: Yes (Hospitalization)
  Sender: FDA-Public Use
  Company Number: FR-PFIZER INC-2010SA070500

PATIENT
  Age: 63 Year
  Sex: Female

DRUGS (16)
  1. TAXOTERE [Suspect]
     Indication: BREAST CANCER
     Dosage: 178 MG, 1X/DAY
     Route: 042
     Dates: start: 20100101, end: 20100101
  2. ALLOPURINOL [Concomitant]
     Dosage: UNK
  3. COLCHICINE [Concomitant]
     Dosage: UNK
  4. LACTULOSE [Concomitant]
  5. CYCLOPHOSPHAMIDE [Suspect]
     Indication: BREAST CANCER
     Dosage: 920 MG, 1X/DAY
     Route: 042
     Dates: start: 20100101, end: 20100101
  6. FUROSEMIDE [Concomitant]
     Dosage: UNK
  7. EPIRUBICIN HYDROCHLORIDE [Suspect]
     Indication: BREAST CANCER
     Dosage: 184 MG, 1X/DAY
     Route: 042
     Dates: start: 20100101, end: 20100101
  8. ZOFRAN [Suspect]
     Indication: BREAST CANCER
     Dosage: 8 MG, 1X/DAY
     Route: 042
     Dates: start: 20100101, end: 20100101
  9. SIMVASTATIN [Concomitant]
     Dosage: UNK
  10. NOCTAMID [Concomitant]
     Dosage: UNK
  11. ALDACTONE [Concomitant]
     Dosage: UNK
  12. LEVOTHYROXINE SODIUM [Concomitant]
     Dosage: UNK
  13. ALPRAZOLAM [Concomitant]
     Dosage: UNK
  14. PAROXETINE HYDROCHLORIDE [Concomitant]
     Dosage: UNK
  15. PANTOPRAZOLE SODIUM [Concomitant]
     Dosage: UNK
  16. FLUOROURACIL [Suspect]
     Indication: BREAST CANCER
     Dosage: 920 MG, 1X/DAY
     Route: 042
     Dates: start: 20100101, end: 20100101

REACTIONS (4)
  - PALMAR-PLANTAR ERYTHRODYSAESTHESIA SYNDROME [None]
  - ALOPECIA [None]
  - MADAROSIS [None]
  - TOXIC SKIN ERUPTION [None]
